APPROVED DRUG PRODUCT: CLARITHROMYCIN
Active Ingredient: CLARITHROMYCIN
Strength: 500MG
Dosage Form/Route: TABLET, EXTENDED RELEASE;ORAL
Application: A202532 | Product #001
Applicant: LUPIN LTD
Approved: Sep 15, 2015 | RLD: No | RS: No | Type: DISCN